FAERS Safety Report 23635955 (Version 1)
Quarter: 2024Q1

REPORT INFORMATION
  Report Type: Spontaneous
  Country: FR (occurrence: FR)
  Receive Date: 20240315
  Receipt Date: 20240315
  Transmission Date: 20240410
  Serious: Yes (Hospitalization, Other)
  Sender: FDA-Public Use
  Company Number: None

PATIENT

DRUGS (5)
  1. IRINOTECAN [Suspect]
     Active Substance: IRINOTECAN
     Indication: Pancreatic neoplasm
     Dosage: 320 MILLIGRAM, CYCLICAL
     Route: 042
     Dates: start: 20240123, end: 20240123
  2. ATROPINE [Concomitant]
     Active Substance: ATROPINE\ATROPINE SULFATE
     Indication: Pancreatic neoplasm
     Dosage: 0.25 MILLIGRAM
     Route: 058
     Dates: start: 20240123, end: 20240123
  3. BEVACIZUMAB [Concomitant]
     Active Substance: BEVACIZUMAB
     Indication: Pancreatic neoplasm
     Dosage: 325 MILLIGRAM
     Route: 042
     Dates: start: 20240123, end: 20240123
  4. METHYLPREDNISOLONE [Concomitant]
     Active Substance: METHYLPREDNISOLONE
     Indication: Pancreatic neoplasm
     Dosage: 80 MILLIGRAM
     Route: 042
     Dates: start: 20240123, end: 20240123
  5. ONDANSETRON [Concomitant]
     Active Substance: ONDANSETRON
     Indication: Pancreatic neoplasm
     Dosage: 8 MILLIGRAM
     Route: 042
     Dates: start: 20240123, end: 20240123

REACTIONS (1)
  - Muscle contractions involuntary [Recovered/Resolved]

NARRATIVE: CASE EVENT DATE: 20240123
